FAERS Safety Report 20187252 (Version 1)
Quarter: 2021Q4

REPORT INFORMATION
  Report Type: Spontaneous
  Country: US (occurrence: None)
  Receive Date: 20211214
  Receipt Date: 20211214
  Transmission Date: 20220303
  Serious: Yes (Hospitalization)
  Sender: FDA-Public Use
  Company Number: None

PATIENT
  Sex: Male

DRUGS (1)
  1. CAPECITABINE [Suspect]
     Active Substance: CAPECITABINE
     Indication: Rectal cancer
     Dosage: FREQUENCY : TAKE 3 TABLETS TWICE DAILY FOR 14 DAYS, 7 DAYS OFF?
     Route: 048
     Dates: start: 20211214

REACTIONS (3)
  - Urinary tract infection [None]
  - Urinary tract obstruction [None]
  - Therapy interrupted [None]
